FAERS Safety Report 6174689-3 (Version None)
Quarter: 2009Q2

REPORT INFORMATION
  Report Type: 
  Country: None (occurrence: None)
  Receive Date: 20090430
  Receipt Date: 20090421
  Transmission Date: 20091009
  Serious: Yes (Hospitalization, Other)
  Sender: FDA-Public Use
  Company Number: US-AMGEN-US343845

PATIENT
  Sex: Male

DRUGS (2)
  1. VECTIBIX [Suspect]
     Indication: COLORECTAL CANCER
     Route: 042
     Dates: start: 20070201
  2. IRINOTECAN HCL [Concomitant]
     Route: 042
     Dates: start: 20070201, end: 20070301

REACTIONS (5)
  - DIARRHOEA [None]
  - HYPOCALCAEMIA [None]
  - HYPOMAGNESAEMIA [None]
  - NAUSEA [None]
  - VOMITING [None]
